FAERS Safety Report 5150915-4 (Version None)
Quarter: 2006Q4

REPORT INFORMATION
  Report Type: 
  Country: None (occurrence: None)
  Receive Date: 20061114
  Receipt Date: 20061107
  Transmission Date: 20070319
  Serious: Yes (Hospitalization)
  Sender: FDA-Public Use
  Company Number: JP-BOEHRINGER INGELHEIM PHARMACEUTICALS, INC.-2006-BP-13033NB

PATIENT
  Age: 66 Year
  Sex: Male

DRUGS (4)
  1. MICARDIS [Suspect]
     Indication: HYPERTENSION
     Route: 048
     Dates: start: 20061104, end: 20061106
  2. OPALMON [Suspect]
     Route: 048
  3. ASPIRIN [Suspect]
     Route: 048
  4. LOXONIN [Suspect]
     Route: 048

REACTIONS (1)
  - ATRIOVENTRICULAR BLOCK THIRD DEGREE [None]
